FAERS Safety Report 8362180 (Version 2)
Quarter: 2015Q1

REPORT INFORMATION
  Report Type: Report from Study
  Country: US (occurrence: US)
  Receive Date: 20120130
  Receipt Date: 20150224
  Transmission Date: 20150721
  Serious: Yes (Death)
  Sender: FDA-Public Use
  Company Number: US-ROCHE-1034225

PATIENT
  Sex: Female
  Weight: 83 kg

DRUGS (23)
  1. PACLITAXEL. [Concomitant]
     Active Substance: PACLITAXEL
     Route: 065
     Dates: start: 20060714
  2. PACLITAXEL. [Concomitant]
     Active Substance: PACLITAXEL
     Dosage: UNIT DOSE: 175 (UNIT NOT REPORTED)
     Route: 065
     Dates: start: 20060927
  3. CARBOPLATIN. [Concomitant]
     Active Substance: CARBOPLATIN
     Dosage: DOSE: 490 (UNIT NOT REPORTED)
     Route: 065
     Dates: start: 20060601
  4. AVASTIN [Suspect]
     Active Substance: BEVACIZUMAB
     Dosage: ACTUAL DOSE: 1125 (UNIT NOT REPORTED)
     Route: 042
     Dates: start: 20060714
  5. PACLITAXEL. [Concomitant]
     Active Substance: PACLITAXEL
     Dosage: UNIT DOSE: 175 (UNIT NOT REPORTED)
     Route: 065
     Dates: start: 20060623
  6. PACLITAXEL. [Concomitant]
     Active Substance: PACLITAXEL
     Route: 065
     Dates: start: 20060906
  7. CARBOPLATIN. [Concomitant]
     Active Substance: CARBOPLATIN
     Dosage: DOSE: 670 (UNIT NOT REPORTED)
     Route: 065
     Dates: start: 20060814
  8. CISPLATIN. [Concomitant]
     Active Substance: CISPLATIN
  9. PACLITAXEL. [Concomitant]
     Active Substance: PACLITAXEL
     Dosage: UNIT DOSE: 175 (UNIT NOT REPORTED)
     Route: 065
     Dates: start: 20060601
  10. CARBOPLATIN. [Concomitant]
     Active Substance: CARBOPLATIN
     Dosage: DOSE: 490 (UNIT NOT REPORTED)
     Route: 065
     Dates: start: 20060623
  11. CARBOPLATIN. [Concomitant]
     Active Substance: CARBOPLATIN
     Dosage: DOSE: 535 (UNIT NOT REPORTED)
     Route: 065
     Dates: start: 20060906
  12. AVASTIN [Suspect]
     Active Substance: BEVACIZUMAB
     Indication: GENITAL NEOPLASM MALIGNANT FEMALE
     Route: 042
  13. PACLITAXEL. [Concomitant]
     Active Substance: PACLITAXEL
     Dosage: UNIT DOSE: 175 (UNIT NOT REPORTED)
     Route: 065
     Dates: start: 20061018
  14. PACLITAXEL. [Concomitant]
     Active Substance: PACLITAXEL
     Route: 065
     Dates: start: 20060814
  15. CARBOPLATIN. [Concomitant]
     Active Substance: CARBOPLATIN
     Dosage: DOSE: 535 (UNIT NOT REPORTED)
     Route: 065
     Dates: start: 20060714
  16. CARBOPLATIN. [Concomitant]
     Active Substance: CARBOPLATIN
     Dosage: DOSE: 595 (UNIT NOT REPORTED)
     Route: 065
     Dates: start: 20060927
  17. ARANESP [Concomitant]
     Active Substance: DARBEPOETIN ALFA
  18. PROCRIT [Concomitant]
     Active Substance: ERYTHROPOIETIN
  19. GEMZAR [Concomitant]
     Active Substance: GEMCITABINE HYDROCHLORIDE
     Route: 042
  20. AVASTIN [Suspect]
     Active Substance: BEVACIZUMAB
     Dosage: ACTUAL DOSE: 1157 (UNIT NOT REPORTED)
     Route: 042
     Dates: start: 20060623
  21. DOXORUBICIN [Concomitant]
     Active Substance: DOXORUBICIN
     Route: 042
  22. CARBOPLATIN. [Concomitant]
     Active Substance: CARBOPLATIN
     Dosage: DOSE: 355 (UNIT NOT REPORTED)
     Route: 065
     Dates: start: 20061018
  23. DEXAMETHASONE. [Concomitant]
     Active Substance: DEXAMETHASONE
     Route: 042

REACTIONS (2)
  - Death [Fatal]
  - Off label use [Unknown]
